FAERS Safety Report 6035450-3 (Version None)
Quarter: 2009Q1

REPORT INFORMATION
  Report Type: 
  Country: None (occurrence: None)
  Receive Date: 20090108
  Receipt Date: 20090105
  Transmission Date: 20090719
  Serious: Yes (Hospitalization)
  Sender: FDA-Public Use
  Company Number: 2008-04099

PATIENT
  Age: 58 Year
  Sex: Female

DRUGS (4)
  1. VELCADE [Suspect]
     Indication: MULTIPLE MYELOMA
     Dosage: 2.1 MG, INTRAVENOUS
     Route: 042
     Dates: start: 20080929, end: 20081024
  2. SULFAMETHOXAZOLE AND TRIMETHOPRIM [Concomitant]
  3. FOLIC ACID [Concomitant]
  4. DAPSONE [Concomitant]

REACTIONS (9)
  - ABDOMINAL PAIN UPPER [None]
  - BRONCHIECTASIS [None]
  - CHEST DISCOMFORT [None]
  - CONSTIPATION [None]
  - EMPHYSEMA [None]
  - GASTRITIS [None]
  - NEUROPATHY PERIPHERAL [None]
  - ORAL HERPES [None]
  - URINARY RETENTION [None]
